FAERS Safety Report 20509047 (Version 2)
Quarter: 2022Q2

REPORT INFORMATION
  Report Type: Spontaneous
  Country: IE (occurrence: IE)
  Receive Date: 20220223
  Receipt Date: 20220408
  Transmission Date: 20220721
  Serious: Yes (Other)
  Sender: FDA-Public Use
  Company Number: IE-ABBVIE-22K-229-4268136-00

PATIENT
  Age: 70 Year
  Sex: Female

DRUGS (5)
  1. RITUXIMAB [Suspect]
     Active Substance: RITUXIMAB
     Dosage: UNK
     Route: 048
  2. VENETOCLAX [Suspect]
     Active Substance: VENETOCLAX
     Indication: Product used for unknown indication
     Dosage: 400 MG
     Route: 048
     Dates: start: 202111
  3. VENETOCLAX [Suspect]
     Active Substance: VENETOCLAX
     Dosage: 200 MG
     Route: 048
  4. PREDNISOLONE [Concomitant]
     Active Substance: PREDNISOLONE
     Dosage: UNK
  5. RASBURICASE [Concomitant]
     Active Substance: RASBURICASE
     Dosage: UNK

REACTIONS (4)
  - Seronegative arthritis [Unknown]
  - Arthritis [Unknown]
  - Synovitis [Unknown]
  - Off label use [Unknown]
